FAERS Safety Report 6112321-5 (Version None)
Quarter: 2009Q1

REPORT INFORMATION
  Report Type: 
  Country: None (occurrence: None)
  Receive Date: 20090311
  Receipt Date: 20090311
  Transmission Date: 20090719
  Serious: No
  Sender: FDA-Public Use
  Company Number: None

PATIENT
  Age: 26 Year
  Sex: Male

DRUGS (1)
  1. CIPRO [Suspect]
     Indication: WOUND
     Dosage: BID 4 DOSES
     Route: 048
     Dates: start: 20090220, end: 20090222

REACTIONS (5)
  - HEADACHE [None]
  - LIGAMENT DISORDER [None]
  - MYALGIA [None]
  - PAIN [None]
  - TENDON PAIN [None]
